FAERS Safety Report 18759409 (Version 4)
Quarter: 2021Q1

REPORT INFORMATION
  Report Type: Spontaneous
  Country: US (occurrence: US)
  Receive Date: 20210120
  Receipt Date: 20210202
  Transmission Date: 20210419
  Serious: Yes (Hospitalization, Other)
  Sender: FDA-Public Use
  Company Number: US-UNITED THERAPEUTICS-UNT-2021-000761

PATIENT
  Age: 56 Year
  Sex: Female
  Weight: 83.45 kg

DRUGS (4)
  1. REMODULIN [Suspect]
     Active Substance: TREPROSTINIL
     Indication: PULMONARY ARTERIAL HYPERTENSION
     Dosage: UNK, CONTINUING
     Route: 041
     Dates: start: 20181220
  2. TADALAFIL. [Concomitant]
     Active Substance: TADALAFIL
     Indication: PRODUCT USED FOR UNKNOWN INDICATION
     Dosage: UNK
     Route: 065
  3. REMODULIN [Suspect]
     Active Substance: TREPROSTINIL
     Dosage: 0.120 ?G/KG, CONTINUING
     Route: 041
  4. REMODULIN [Suspect]
     Active Substance: TREPROSTINIL
     Dosage: 0.116 ?G/KG, CONTINUING
     Route: 041

REACTIONS (9)
  - Suspected COVID-19 [Unknown]
  - Malaise [Unknown]
  - Feeling abnormal [Recovering/Resolving]
  - Pneumonia [Unknown]
  - Decreased appetite [Unknown]
  - Pain [Unknown]
  - Pulmonary arterial hypertension [Unknown]
  - Bacteraemia [Unknown]
  - Dry mouth [Unknown]

NARRATIVE: CASE EVENT DATE: 20210119
